FAERS Safety Report 6567228-6 (Version None)
Quarter: 2010Q1

REPORT INFORMATION
  Report Type: 
  Country: None (occurrence: None)
  Receive Date: 20100128
  Receipt Date: 20100113
  Transmission Date: 20100710
  Serious: Yes (Death, Hospitalization)
  Sender: FDA-Public Use
  Company Number: 2010AC000011

PATIENT
  Age: 30 Year
  Sex: Female
  Weight: 127.9144 kg

DRUGS (14)
  1. DIGOXIN [Suspect]
     Dosage: 0.125 MG; PO
     Route: 048
     Dates: start: 20070401, end: 20080101
  2. TAMOXIFEN CITRATE [Concomitant]
  3. LEXAPRO [Concomitant]
  4. DIFLUCAN [Concomitant]
  5. FUROSEMIDE [Concomitant]
  6. POTASSIUM [Concomitant]
  7. METOPROLOL TARTRATE [Concomitant]
  8. LOTREL [Concomitant]
  9. AUGMENTIN [Concomitant]
  10. *NIFEREX [Concomitant]
  11. HYDROCODONE BITARTRATE AND ACETAMINOPHEN [Concomitant]
  12. AMOXICLN/CLAV [Concomitant]
  13. TOPROL-XL [Concomitant]
  14. AMLODIP/BENAZEP [Concomitant]

REACTIONS (14)
  - ACUTE MYOCARDIAL INFARCTION [None]
  - ANAEMIA [None]
  - ARRHYTHMIA [None]
  - CARDIAC FAILURE CONGESTIVE [None]
  - CARDIO-RESPIRATORY ARREST [None]
  - CARDIOMEGALY [None]
  - CONGESTIVE CARDIOMYOPATHY [None]
  - CONVULSION [None]
  - FATIGUE [None]
  - GENERAL PHYSICAL HEALTH DETERIORATION [None]
  - HYPOTENSION [None]
  - MULTIPLE INJURIES [None]
  - PLEURAL EFFUSION [None]
  - TACHYCARDIA [None]
